FAERS Safety Report 16461835 (Version 2)
Quarter: 2019Q3

REPORT INFORMATION
  Report Type: Spontaneous
  Country: US (occurrence: US)
  Receive Date: 20190621
  Receipt Date: 20190726
  Transmission Date: 20191004
  Serious: No
  Sender: FDA-Public Use
  Company Number: US-HETERO-HET2019US00846

PATIENT
  Sex: Male
  Weight: 104 kg

DRUGS (1)
  1. SILDENAFIL. [Suspect]
     Active Substance: SILDENAFIL
     Indication: ERECTILE DYSFUNCTION
     Dosage: 100 MG, ONE HOUR BEFORE SEX
     Route: 065
     Dates: start: 201905, end: 20190614

REACTIONS (1)
  - Drug ineffective [Not Recovered/Not Resolved]
